FAERS Safety Report 6913785-7 (Version None)
Quarter: 2010Q3

REPORT INFORMATION
  Report Type: 
  Country: None (occurrence: None)
  Receive Date: 20100809
  Receipt Date: 20100729
  Transmission Date: 20110219
  Serious: Yes (Hospitalization)
  Sender: FDA-Public Use
  Company Number: DE-ROCHE-698148

PATIENT
  Sex: Female
  Weight: 56 kg

DRUGS (2)
  1. CAPECITABINE [Suspect]
     Indication: RECTAL CANCER
     Dosage: DAY1-33, 5 DAYS PER WEEK, WITHOUT WEEKENDS AND OPTIMAL BOOST LAST DOSE PRIOR TO SAE: 09 APRIL 2010.
     Route: 048
     Dates: start: 20100329, end: 20100611
  2. OXALIPLATIN [Suspect]
     Indication: RECTAL CANCER
     Dosage: DAY1, 8, 15, 22 AND 29, DOSE AND FREQUENCY AS PER PROTOCOL, LAST DOSE PRIOR TO SAE 06 APRIL 2010
     Route: 042
     Dates: start: 20100329, end: 20100611

REACTIONS (2)
  - DIARRHOEA [None]
  - ILEUS [None]
